FAERS Safety Report 7088158-X (Version None)
Quarter: 2010Q4

REPORT INFORMATION
  Report Type: 
  Country: None (occurrence: None)
  Receive Date: 20101028
  Receipt Date: 20101019
  Transmission Date: 20110411
  Serious: Yes (Hospitalization)
  Sender: FDA-Public Use
  Company Number: 2010US004354

PATIENT
  Age: 44 Year
  Sex: Male

DRUGS (1)
  1. PROGRAF [Suspect]
     Indication: RENAL TRANSPLANT
     Dosage: 3 MG, UID/QD, ORAL
     Route: 048
     Dates: start: 20020624

REACTIONS (1)
  - VASCULAR GRAFT [None]
